FAERS Safety Report 8843409 (Version 1)
Quarter: 2012Q4

REPORT INFORMATION
  Report Type: 
  Country: US (occurrence: US)
  Receive Date: 20121016
  Receipt Date: 20121016
  Transmission Date: 20130627
  Serious: Yes (Hospitalization)
  Sender: FDA-Public Use
  Company Number: US-ELI_LILLY_AND_COMPANY-US201210003843

PATIENT
  Age: 66 Year
  Sex: Male

DRUGS (27)
  1. EFFIENT [Suspect]
     Dosage: 5 mg, qd
     Dates: start: 20101027, end: 20111108
  2. EFFIENT [Suspect]
     Dosage: 10 mg, qd
     Dates: start: 20111109, end: 20120925
  3. AMLODIPINE [Concomitant]
     Dosage: 5 mg, qd
     Dates: start: 199906
  4. ATENOLOL [Concomitant]
     Dosage: 100 mg, qd
  5. METFORMIN HYDROCHLORIDE [Concomitant]
     Dosage: 500 mg, bid
     Dates: start: 2008, end: 20111229
  6. METFORMIN HYDROCHLORIDE [Concomitant]
     Dosage: 500 mg, bid
     Dates: start: 20120112
  7. FUROSEMIDE [Concomitant]
     Dosage: 40 mg, bid
     Dates: start: 20050421
  8. GLIMEPIRIDE [Concomitant]
     Dosage: 4 mg, qd
     Dates: start: 200907
  9. EZETIMIBE [Concomitant]
     Dosage: 10 mg, qd
     Dates: start: 20050505
  10. SIMVASTATIN [Concomitant]
     Dosage: 40 mg, qd
     Dates: start: 20050505
  11. ESOMEPRAZOLE [Concomitant]
     Dosage: 40 mg, qd
     Dates: start: 20090310, end: 20111229
  12. ALPRAZOLAM [Concomitant]
     Dosage: 0.25 mg, UNK
     Dates: start: 20050502, end: 20111230
  13. ALPRAZOLAM [Concomitant]
     Dosage: 0.25 mg, UNK
     Dates: start: 20120101
  14. ESCITALOPRAM OXALATE [Concomitant]
     Dosage: 10 mg, qd
     Dates: start: 201009
  15. VALSARTAN [Concomitant]
     Dosage: 160 mg, qd
     Dates: start: 2010
  16. NITROGLYCERINE [Concomitant]
     Dosage: 0.4 mg, prn
     Dates: start: 1996
  17. FLUTICASONE PROPIONATE [Concomitant]
     Dosage: 1 DF, prn
  18. CILOSTAZOL [Concomitant]
     Dosage: 50 mg, bid
     Dates: start: 20101025, end: 20110531
  19. DABIGATRAN ETEXILATE [Concomitant]
     Dosage: 150 mg, bid
     Dates: start: 20110531, end: 20111108
  20. SPIRIVA [Concomitant]
     Dosage: 18 ug, qd
     Dates: start: 20110929
  21. ALBUTEROL SULFATE [Concomitant]
     Dosage: UNK
     Dates: start: 20110929
  22. PANTOPRAZOLE [Concomitant]
     Dosage: 40 mg, qd
     Dates: start: 20111230, end: 20120101
  23. PANTOPRAZOLE [Concomitant]
     Dosage: 40 mg, qd
     Dates: start: 20120922, end: 20120926
  24. DIAZEPAM [Concomitant]
     Dosage: 10 mg, single
     Dates: start: 20111231
  25. INFLUENZA VACCINE [Concomitant]
     Dosage: 0.5 ml, UNK
     Dates: start: 20120926
  26. PARACETAMOL [Concomitant]
     Dosage: 650 mg, UNK
     Dates: start: 20120923
  27. ASPIRIN [Concomitant]
     Dosage: UNK
     Dates: start: 200804, end: 20120925

REACTIONS (12)
  - Pancytopenia [Unknown]
  - Angina pectoris [Recovered/Resolved]
  - Medical device complication [Unknown]
  - Dyspnoea [Recovered/Resolved]
  - Dizziness [Recovered/Resolved]
  - Angina pectoris [Unknown]
  - Low density lipoprotein decreased [Unknown]
  - Cystatin C increased [Unknown]
  - C-reactive protein increased [Unknown]
  - Gamma-glutamyltransferase increased [Unknown]
  - Blood cholesterol decreased [Unknown]
  - Type 2 diabetes mellitus [Unknown]
